FAERS Safety Report 5213251-3 (Version None)
Quarter: 2007Q1

REPORT INFORMATION
  Report Type: 
  Country: None (occurrence: None)
  Receive Date: 20070116
  Receipt Date: 20070101
  Transmission Date: 20070707
  Serious: Yes (Other)
  Sender: FDA-Public Use
  Company Number: 1-14514472

PATIENT
  Sex: Male
  Weight: 78.8 kg

DRUGS (3)
  1. CARISOPRODOL [Suspect]
     Indication: PAIN
     Dosage: 350 MG, THREE TIMES DAILY, ORAL
     Route: 048
     Dates: start: 20061229, end: 20070101
  2. NORCO [Suspect]
     Indication: PAIN
     Dosage: AS NEEDED, ORAL
     Route: 048
     Dates: start: 20061229
  3. VALIUM [Concomitant]

REACTIONS (8)
  - CATATONIA [None]
  - CHEST PAIN [None]
  - DRUG TOXICITY [None]
  - DYSPHAGIA [None]
  - DYSPNOEA [None]
  - NAUSEA [None]
  - NO THERAPEUTIC RESPONSE [None]
  - PANIC ATTACK [None]
